FAERS Safety Report 5695935-6 (Version None)
Quarter: 2008Q2

REPORT INFORMATION
  Report Type: 
  Country: None (occurrence: None)
  Receive Date: 20080407
  Receipt Date: 20080402
  Transmission Date: 20081010
  Serious: Yes (Hospitalization)
  Sender: FDA-Public Use
  Company Number: JP-BRISTOL-MYERS SQUIBB COMPANY-14136733

PATIENT
  Age: 78 Year
  Sex: Male

DRUGS (9)
  1. BRIPLATIN [Suspect]
     Indication: PLEURAL MESOTHELIOMA MALIGNANT
     Dosage: 95MG ON 12DEC07 (1DAY); 93MG ON 9JAN08 (1DAY)
     Route: 041
     Dates: start: 20071012, end: 20071114
  2. ALIMTA [Suspect]
     Indication: PLEURAL MESOTHELIOMA MALIGNANT
     Dosage: 600MG ON 14NOV07; 95MG ON 12DEC07; 93MG ON 9JAN08
     Route: 041
     Dates: start: 20071012, end: 20071012
  3. PANVITAN [Concomitant]
     Route: 048
     Dates: start: 20071005, end: 20080306
  4. CYANOCOBALAMIN [Concomitant]
     Route: 030
     Dates: start: 20071005, end: 20071211
  5. MORPHINE HCL [Concomitant]
     Route: 054
     Dates: start: 20071005, end: 20071119
  6. TRYPTANOL [Concomitant]
     Route: 048
     Dates: start: 20071120
  7. NOVAMIN [Concomitant]
     Route: 048
     Dates: start: 20071005, end: 20071123
  8. PARIET [Concomitant]
     Route: 048
     Dates: start: 20071004
  9. DUROTEP [Concomitant]
     Route: 062
     Dates: start: 20071123

REACTIONS (3)
  - ANAEMIA [None]
  - ANOREXIA [None]
  - STOMATITIS [None]
